FAERS Safety Report 5373497-0 (Version None)
Quarter: 2007Q2

REPORT INFORMATION
  Report Type: 
  Country: None (occurrence: None)
  Receive Date: 20070626
  Receipt Date: 20070626
  Transmission Date: 20071010
  Serious: Yes (Death, Life-Threatening, Hospitalization)
  Sender: FDA-Public Use
  Company Number: None

PATIENT
  Age: 70 Year
  Sex: Male
  Weight: 57.6068 kg

DRUGS (2)
  1. DOCETAXEL 75 MG/ M2 AVENTIS [Suspect]
     Indication: LUNG NEOPLASM MALIGNANT
     Dosage: 75 MG/M2 EVERY 3 WEEKS IV DRIP
     Route: 041
     Dates: start: 20070412, end: 20070412
  2. DOCETAXEL 75 MG/ M2 AVENTIS [Suspect]
     Indication: LUNG NEOPLASM MALIGNANT
     Dosage: 75 MG/M2 EVERY 3 WEEKS IV DRIP
     Route: 041
     Dates: start: 20070510, end: 20070510

REACTIONS (4)
  - HYPERHIDROSIS [None]
  - HYPOXIA [None]
  - PULMONARY FIBROSIS [None]
  - PYREXIA [None]
